FAERS Safety Report 13483980 (Version 1)
Quarter: 2017Q2

REPORT INFORMATION
  Report Type: Spontaneous
  Country: US (occurrence: US)
  Receive Date: 20170425
  Receipt Date: 20170425
  Transmission Date: 20170830
  Serious: No
  Sender: FDA-Public Use
  Company Number: None

PATIENT
  Age: 67 Year
  Sex: Male

DRUGS (1)
  1. LINACLOTIDE [Suspect]
     Active Substance: LINACLOTIDE

REACTIONS (8)
  - Change of bowel habit [None]
  - Failure to thrive [None]
  - Ileus [None]
  - Unevaluable event [None]
  - Abdominal distension [None]
  - Food intolerance [None]
  - Abnormal faeces [None]
  - Diarrhoea [None]

NARRATIVE: CASE EVENT DATE: 20170214
